FAERS Safety Report 7026429-3 (Version None)
Quarter: 2010Q4

REPORT INFORMATION
  Report Type: 
  Country: None (occurrence: None)
  Receive Date: 20101004
  Receipt Date: 20100928
  Transmission Date: 20110411
  Serious: Yes (Hospitalization, Other)
  Sender: FDA-Public Use
  Company Number: PHHO2010US08652

PATIENT
  Sex: Male
  Weight: 115 kg

DRUGS (3)
  1. TASIGNA [Suspect]
     Indication: CHRONIC MYELOID LEUKAEMIA
     Dosage: 400 MG, BID
     Route: 048
     Dates: start: 20080820, end: 20100531
  2. TASIGNA [Suspect]
     Dosage: 400 MG, BID
     Route: 048
     Dates: start: 20100601
  3. COUMADIN [Concomitant]
     Indication: PROPHYLAXIS
     Dosage: UNK
     Dates: start: 20100330

REACTIONS (5)
  - ANAEMIA [None]
  - ASTHENIA [None]
  - DIZZINESS [None]
  - ELECTROCARDIOGRAM QT PROLONGED [None]
  - GASTROINTESTINAL HAEMORRHAGE [None]
